FAERS Safety Report 6666072-9 (Version None)
Quarter: 2010Q2

REPORT INFORMATION
  Report Type: 
  Country: None (occurrence: None)
  Receive Date: 20100402
  Receipt Date: 20100325
  Transmission Date: 20101027
  Serious: Yes (Hospitalization)
  Sender: FDA-Public Use
  Company Number: B0644374A

PATIENT
  Sex: Male

DRUGS (3)
  1. ACITRETIN [Suspect]
     Dosage: 10MG PER DAY
     Route: 048
     Dates: start: 20100101, end: 20100101
  2. LAMOTRIGINE [Suspect]
     Indication: ANGELMAN'S SYNDROME
     Dosage: 250MG PER DAY
     Route: 048
     Dates: start: 20060831
  3. TOPIRAMATE [Suspect]
     Indication: ANGELMAN'S SYNDROME
     Dosage: 100MG PER DAY
     Route: 048
     Dates: start: 20070411

REACTIONS (3)
  - DIARRHOEA HAEMORRHAGIC [None]
  - PRURITUS [None]
  - SKIN LESION [None]
